FAERS Safety Report 8063181-7 (Version None)
Quarter: 2012Q1

REPORT INFORMATION
  Report Type: 
  Country: None (occurrence: None)
  Receive Date: 20120123
  Receipt Date: 20120116
  Transmission Date: 20120608
  Serious: Yes (Hospitalization)
  Sender: FDA-Public Use
  Company Number: PHHY2012TR004255

PATIENT
  Sex: Male
  Weight: 56 kg

DRUGS (6)
  1. EVEROLIMUS [Suspect]
     Dosage: 2 MG, UNK
     Route: 048
     Dates: start: 20111227, end: 20120103
  2. DELTACORTRIL [Concomitant]
     Indication: IMMUNOSUPPRESSION
     Dosage: 5 MG, UNK
     Dates: start: 20110915
  3. EVEROLIMUS [Suspect]
     Indication: IMMUNOSUPPRESSION
     Dosage: 1.5 MG, BID
     Route: 048
     Dates: start: 20111215, end: 20111227
  4. EVEROLIMUS [Suspect]
     Dosage: 1.75 MG (1 + 0.75 MG)
     Route: 048
     Dates: start: 20120103
  5. PROGRAF [Concomitant]
     Indication: IMMUNOSUPPRESSION
     Dosage: 1 + 1 MG
     Dates: start: 20120107
  6. MYFORTIC [Suspect]

REACTIONS (5)
  - DIARRHOEA [None]
  - BLOOD CREATININE INCREASED [None]
  - WEIGHT DECREASED [None]
  - NAUSEA [None]
  - VOMITING [None]
